FAERS Safety Report 16812650 (Version 5)
Quarter: 2020Q2

REPORT INFORMATION
  Report Type: Spontaneous
  Country: US (occurrence: US)
  Receive Date: 20190916
  Receipt Date: 20200506
  Transmission Date: 20200713
  Serious: Yes (Death, Hospitalization)
  Sender: FDA-Public Use
  Company Number: US-ACTELION-A-NJ2019-195391

PATIENT
  Age: 62 Year
  Sex: Female
  Weight: 82.09 kg

DRUGS (1)
  1. OPSUMIT [Suspect]
     Active Substance: MACITENTAN
     Indication: PULMONARY ARTERIAL HYPERTENSION
     Dosage: 10 MG, QD
     Route: 048
     Dates: start: 20180327, end: 20200316

REACTIONS (10)
  - Hospitalisation [Unknown]
  - Product dose omission [Unknown]
  - Urinary tract infection [Unknown]
  - Fall [Unknown]
  - Syncope [Unknown]
  - Skin injury [Unknown]
  - Death [Fatal]
  - Catheter placement [Unknown]
  - Feeling abnormal [Unknown]
  - Contusion [Unknown]

NARRATIVE: CASE EVENT DATE: 20200419
